FAERS Safety Report 5595498-X (Version None)
Quarter: 2008Q1

REPORT INFORMATION
  Report Type: 
  Country: None (occurrence: None)
  Receive Date: 20080118
  Receipt Date: 20080108
  Transmission Date: 20080703
  Serious: Yes (Hospitalization)
  Sender: FDA-Public Use
  Company Number: US-JNJFOC-20080104072

PATIENT
  Sex: Female

DRUGS (2)
  1. IBUPROFEN [Suspect]
     Indication: ANALGESIA
  2. DESMOPRESSIN [Interacting]
     Indication: ANALGESIA

REACTIONS (3)
  - COMA [None]
  - DRUG INTERACTION [None]
  - HYPONATRAEMIA [None]
